FAERS Safety Report 21498083 (Version 1)
Quarter: 2022Q4

REPORT INFORMATION
  Report Type: Spontaneous
  Country: CN (occurrence: CN)
  Receive Date: 20221024
  Receipt Date: 20221024
  Transmission Date: 20230112
  Serious: Yes (Other)
  Sender: FDA-Public Use
  Company Number: None

PATIENT
  Age: 56 Year
  Sex: Female
  Weight: 63 kg

DRUGS (8)
  1. CYCLOPHOSPHAMIDE [Suspect]
     Active Substance: CYCLOPHOSPHAMIDE
     Indication: Breast cancer female
     Dosage: 1000 MG, QD, DILUTED WITH SODIUM CHLORIDE 50 ML, FIRST CHEMOTHERAPY
     Route: 042
     Dates: start: 20220721, end: 20220721
  2. CYCLOPHOSPHAMIDE [Suspect]
     Active Substance: CYCLOPHOSPHAMIDE
     Indication: Chemotherapy
  3. SODIUM CHLORIDE [Suspect]
     Active Substance: SODIUM CHLORIDE
     Indication: Vehicle solution use
     Dosage: 50 ML, QD, DILUTED IN CYCLOPHOSPHAMIDE 1000 MG, FIRST CHEMOTHERAPY
     Route: 042
     Dates: start: 20220721, end: 20220721
  4. SODIUM CHLORIDE [Suspect]
     Active Substance: SODIUM CHLORIDE
     Dosage: 100 ML, QD, DILUTED IN PHARMORUBICIN 150 MG, FIRST CHEMOTHERAPY
     Route: 041
     Dates: start: 20220721, end: 20220721
  5. EPIRUBICIN [Suspect]
     Active Substance: EPIRUBICIN
     Indication: Breast cancer female
     Dosage: 150 MG, QD, DILUTED WITH SODIUM CHLORIDE 100 ML, FIRST CHEMOTHERAPY
     Route: 041
     Dates: start: 20220721, end: 20220721
  6. EPIRUBICIN [Suspect]
     Active Substance: EPIRUBICIN
     Indication: Chemotherapy
  7. Jin you li [Concomitant]
     Indication: Product used for unknown indication
     Dosage: 3 MG ON THE SECOND DAY
     Route: 058
     Dates: start: 202207
  8. XIN RUI BAI [Concomitant]
     Indication: Product used for unknown indication
     Dosage: 3 MG ON THE SECOND DAY
     Route: 058
     Dates: start: 202207

REACTIONS (2)
  - White blood cell count decreased [Recovered/Resolved]
  - Agranulocytosis [Recovered/Resolved]

NARRATIVE: CASE EVENT DATE: 20220728
